FAERS Safety Report 5972135-3 (Version None)
Quarter: 2008Q4

REPORT INFORMATION
  Report Type: 
  Country: None (occurrence: None)
  Receive Date: 20081201
  Receipt Date: 20080714
  Transmission Date: 20090506
  Serious: Yes (Other)
  Sender: FDA-Public Use
  Company Number: US-TEVA-174453USA

PATIENT
  Age: 38 Year
  Sex: Female
  Weight: 115.77 kg

DRUGS (1)
  1. SALBUTAMOL SULFATE INHALATION, 0.09 MG [Suspect]
     Indication: ASTHMA
     Dosage: 1-2 PUFFS, UP TO 4 HOURS
     Route: 055

REACTIONS (1)
  - DRUG INEFFECTIVE [None]
